FAERS Safety Report 10921961 (Version 1)
Quarter: 2015Q1

REPORT INFORMATION
  Report Type: Spontaneous
  Country: ES (occurrence: None)
  Receive Date: 20150312
  Receipt Date: 20150312
  Transmission Date: 20150721
  Serious: Yes (Hospitalization, Other)
  Sender: FDA-Public Use
  Company Number: 2277434

PATIENT
  Age: 74 Year
  Sex: Female

DRUGS (6)
  1. (5-FU /00098801/) [Suspect]
     Active Substance: FLUOROURACIL
     Indication: ADENOCARCINOMA OF COLON
  2. OXALIPLATIN. [Suspect]
     Active Substance: OXALIPLATIN
     Indication: ADENOCARCINOMA OF COLON
  3. RALTITREXED DISODIUM [Suspect]
     Active Substance: RALTITREXED
     Indication: ADENOCARCINOMA OF COLON
  4. CETUXIMAB [Suspect]
     Active Substance: CETUXIMAB
     Indication: ADENOCARCINOMA OF COLON
  5. FOLINIC ACID [Suspect]
     Active Substance: LEUCOVORIN
     Indication: ADENOCARCINOMA OF COLON
  6. IRINOTECAN HYDROCHLORIDE. [Suspect]
     Active Substance: IRINOTECAN HYDROCHLORIDE
     Indication: ADENOCARCINOMA OF COLON

REACTIONS (5)
  - Cardiac failure [None]
  - Cardiomyopathy [None]
  - Myocardial ischaemia [None]
  - Dyspnoea [None]
  - General physical health deterioration [None]
